FAERS Safety Report 9244280 (Version 1)
Quarter: 2013Q1

REPORT INFORMATION
  Report Type: Spontaneous
  Country: US (occurrence: None)
  Receive Date: 20121123
  Receipt Date: 20121123
  Transmission Date: 20140127
  Serious: Yes (Other)
  Sender: FDA-Public Use
  Company Number: 361104

PATIENT
  Age: 61 Year
  Sex: Female
  Weight: 218 kg

DRUGS (1)
  1. VICTOZA [Suspect]
     Indication: TYPE 2 DIABETES MELLITUS
     Route: 058

REACTIONS (3)
  - Anaphylactic reaction [None]
  - Injection site erythema [None]
  - Injection site swelling [None]
